FAERS Safety Report 26088001 (Version 1)
Quarter: 2025Q4

REPORT INFORMATION
  Report Type: Spontaneous
  Country: US (occurrence: US)
  Receive Date: 20251125
  Receipt Date: 20251125
  Transmission Date: 20260118
  Serious: Yes (Other)
  Sender: JOHNSON AND JOHNSON
  Company Number: US-JNJFOC-20251152234

PATIENT
  Sex: Male

DRUGS (1)
  1. RYBREVANT [Suspect]
     Active Substance: AMIVANTAMAB-VMJW
     Indication: Non-small cell lung cancer
     Route: 065

REACTIONS (7)
  - Drug ineffective [Unknown]
  - Rash [Not Recovered/Not Resolved]
  - Bladder pain [Unknown]
  - Poor peripheral circulation [Unknown]
  - Nail disorder [Unknown]
  - Skin irritation [Unknown]
  - Pulmonary mass [Unknown]
